FAERS Safety Report 5793095-4 (Version None)
Quarter: 2008Q2

REPORT INFORMATION
  Report Type: 
  Country: None (occurrence: None)
  Receive Date: 20080627
  Receipt Date: 20080618
  Transmission Date: 20081010
  Serious: Yes (Other)
  Sender: FDA-Public Use
  Company Number: CZ-PURDUE-DEU_2008_0004421

PATIENT
  Age: 58 Year
  Sex: Female

DRUGS (10)
  1. OXYCONTIN [Suspect]
     Indication: PAIN
     Dosage: 10 MG, SINGLE
     Route: 048
     Dates: start: 20080520
  2. LOSEPRAZOL [Concomitant]
  3. CITALEC [Concomitant]
  4. CLONAZEPAM [Concomitant]
  5. MILURIT [Concomitant]
  6. LYRICA [Concomitant]
  7. AESCIN [Concomitant]
  8. ECOSAL [Concomitant]
  9. KETOTIFEN FUMARATE [Concomitant]
  10. BOTULINUM TOXIN [Concomitant]

REACTIONS (2)
  - ASTHMA [None]
  - VOMITING [None]
